FAERS Safety Report 6194316-9 (Version None)
Quarter: 2009Q2

REPORT INFORMATION
  Report Type: 
  Country: None (occurrence: None)
  Receive Date: 20090519
  Receipt Date: 20090507
  Transmission Date: 20091009
  Serious: Yes (Hospitalization, Other)
  Sender: FDA-Public Use
  Company Number: US-RANBAXY-2009US-23978

PATIENT

DRUGS (1)
  1. NITROFURANTOIN MONOHYDRATE/MACROCRYSTALS [Suspect]
     Indication: URINARY TRACT INFECTION
     Dosage: UNK, UNK
     Route: 065

REACTIONS (3)
  - CEREBROVASCULAR ACCIDENT [None]
  - EOSINOPHILIA [None]
  - HEMIPARESIS [None]
